FAERS Safety Report 8991006 (Version 1)
Quarter: 2012Q4

REPORT INFORMATION
  Report Type: Spontaneous
  Country: US (occurrence: None)
  Receive Date: 20121220
  Receipt Date: 20121220
  Transmission Date: 20130627
  Serious: Yes (Other)
  Sender: FDA-Public Use
  Company Number: 2012AP004271

PATIENT
  Sex: Female

DRUGS (4)
  1. ALENDRONATE SODIUM TABLETS [Suspect]
     Indication: OSTEOPOROSIS
     Dates: start: 200906, end: 201101
  2. ALENDRONATE SODIUM TABLETS [Suspect]
     Dates: start: 199603, end: 199605
  3. ALENDRONATE SODIUM TABLETS [Suspect]
     Dates: start: 199709, end: 200008
  4. ALENDRONATE SODIUM TABLETS [Suspect]
     Dates: start: 200109, end: 200905

REACTIONS (9)
  - Low turnover osteopathy [None]
  - Femur fracture [None]
  - Mental disorder [None]
  - Pain [None]
  - Multiple injuries [None]
  - Fear of disease [None]
  - Anhedonia [None]
  - Anxiety [None]
  - Quality of life decreased [None]
